FAERS Safety Report 13335330 (Version 3)
Quarter: 2020Q2

REPORT INFORMATION
  Report Type: Spontaneous
  Country: US (occurrence: US)
  Receive Date: 20170315
  Receipt Date: 20200413
  Transmission Date: 20200713
  Serious: Yes (Hospitalization)
  Sender: FDA-Public Use
  Company Number: US-CIPLA LTD.-2017US04124

PATIENT

DRUGS (18)
  1. METHYLPREDNISOLONE. [Suspect]
     Active Substance: METHYLPREDNISOLONE
     Indication: IMMUNOMODULATORY THERAPY
  2. IMMUNOGLOBULIN [IMMUNOGLOBULINS NOS] [Concomitant]
     Active Substance: IMMUNE GLOBULIN NOS
     Dosage: 60 GRAM, MONTHLY
     Route: 042
  3. TOPIRAMATE. [Suspect]
     Active Substance: TOPIRAMATE
     Indication: EPILEPSY
     Dosage: UNK
     Route: 065
  4. METHYLPREDNISOLONE. [Suspect]
     Active Substance: METHYLPREDNISOLONE
     Indication: STATUS EPILEPTICUS
     Dosage: 1 G ON DAY 3, 4 AND 5
     Route: 042
  5. TACROLIMUS. [Interacting]
     Active Substance: TACROLIMUS
     Dosage: 9 MG ON DAY 7, 8 AND 9
     Route: 065
  6. METHYLPREDNISOLONE. [Suspect]
     Active Substance: METHYLPREDNISOLONE
     Indication: EPILEPSY
  7. TACROLIMUS. [Interacting]
     Active Substance: TACROLIMUS
     Dosage: 9 MG ON DAY 13, 14 AND 15
     Route: 065
  8. TACROLIMUS. [Interacting]
     Active Substance: TACROLIMUS
     Dosage: 5 MG ON DAY 17, 18, 19, 20 AND 21
     Route: 065
  9. TACROLIMUS. [Interacting]
     Active Substance: TACROLIMUS
     Dosage: 7 MG ON DAY 5 AND 6
     Route: 065
  10. TACROLIMUS. [Interacting]
     Active Substance: TACROLIMUS
     Dosage: 10 MG ON DAY 10, 11 AND 12
     Route: 065
  11. PHENYTOIN. [Interacting]
     Active Substance: PHENYTOIN
     Indication: STATUS EPILEPTICUS
     Dosage: UNK
     Route: 065
  12. TACROLIMUS. [Interacting]
     Active Substance: TACROLIMUS
     Indication: EPILEPSY
     Dosage: 6 MG ON DAY 4
     Route: 065
  13. IMMUNOGLOBULIN [IMMUNOGLOBULINS NOS] [Concomitant]
     Active Substance: IMMUNE GLOBULIN NOS
     Indication: PRODUCT USED FOR UNKNOWN INDICATION
     Dosage: UNK, 0.5 G/KG, MONTHLY
     Route: 042
  14. TACROLIMUS. [Interacting]
     Active Substance: TACROLIMUS
     Indication: IMMUNOMODULATORY THERAPY
     Dosage: 5 MG ON DAY 3
     Route: 065
  15. TACROLIMUS. [Interacting]
     Active Substance: TACROLIMUS
     Dosage: 5 MILLIGRAM, BID
     Route: 065
  16. VALPROIC ACID. [Suspect]
     Active Substance: VALPROIC ACID
     Indication: EPILEPSY
     Dosage: UNK
     Route: 065
  17. TACROLIMUS. [Interacting]
     Active Substance: TACROLIMUS
     Dosage: 8 MILLIGRAM, BID (TITRATED)
     Route: 065
  18. TACROLIMUS. [Interacting]
     Active Substance: TACROLIMUS
     Dosage: 7 MILLIGRAM, BID
     Route: 065

REACTIONS (2)
  - Therapy non-responder [Unknown]
  - Drug interaction [Unknown]
